FAERS Safety Report 13986646 (Version 1)
Quarter: 2017Q3

REPORT INFORMATION
  Report Type: Spontaneous
  Country: JP (occurrence: JP)
  Receive Date: 20170919
  Receipt Date: 20170919
  Transmission Date: 20171128
  Serious: Yes (Hospitalization, Other)
  Sender: FDA-Public Use
  Company Number: JP-GLAXOSMITHKLINE-JP2017JPN132243

PATIENT
  Age: 81 Year
  Sex: Male

DRUGS (6)
  1. LANSOPRAZOLE-OD [Concomitant]
     Active Substance: LANSOPRAZOLE
     Dosage: UNK
  2. MAGNESIUM OXIDE. [Concomitant]
     Active Substance: MAGNESIUM OXIDE
     Dosage: UNK
  3. ENTACAPONE. [Concomitant]
     Active Substance: ENTACAPONE
     Dosage: UNK
  4. FLIVAS OD [Concomitant]
     Dosage: UNK
  5. EC-DOPARL [Concomitant]
     Active Substance: BENSERAZIDE HYDROCHLORIDE\LEVODOPA
     Dosage: 0.5 UNK, UNK
  6. REQUIP [Suspect]
     Active Substance: ROPINIROLE HYDROCHLORIDE
     Indication: PARKINSON^S DISEASE
     Dosage: 4 MG, QD
     Route: 048

REACTIONS (5)
  - Gastrointestinal disorder [Not Recovered/Not Resolved]
  - Pneumonia [Unknown]
  - Vomiting [Not Recovered/Not Resolved]
  - Dysphagia [Unknown]
  - Discoloured vomit [Unknown]
